FAERS Safety Report 24068932 (Version 1)
Quarter: 2024Q3

REPORT INFORMATION
  Report Type: Report from Study
  Country: TR (occurrence: TR)
  Receive Date: 20240710
  Receipt Date: 20240710
  Transmission Date: 20241017
  Serious: No
  Sender: ROCHE
  Company Number: TR-ROCHE-3494806

PATIENT
  Age: 50 Year
  Sex: Male

DRUGS (9)
  1. ALECTINIB [Suspect]
     Active Substance: ALECTINIB
     Indication: Non-small cell lung cancer
     Route: 048
     Dates: start: 20210602
  2. ALECTINIB [Suspect]
     Active Substance: ALECTINIB
     Route: 048
     Dates: start: 20210118
  3. LEVOPRONT [Concomitant]
     Indication: Cough
     Route: 048
     Dates: start: 20211207
  4. ACETAMINOPHEN\CAFFEINE\CODEINE PHOSPHATE [Concomitant]
     Active Substance: ACETAMINOPHEN\CAFFEINE\CODEINE PHOSPHATE
     Route: 048
     Dates: start: 20211207
  5. DEXKETOPROFEN [Concomitant]
     Active Substance: DEXKETOPROFEN
     Route: 048
     Dates: start: 20211125
  6. VENTOLIN [Concomitant]
     Active Substance: ALBUTEROL SULFATE
     Indication: Asthma
     Route: 050
     Dates: start: 20211231
  7. ELIQUIS [Concomitant]
     Active Substance: APIXABAN
     Indication: Embolism
     Route: 048
     Dates: start: 20230824
  8. ELIQUIS [Concomitant]
     Active Substance: APIXABAN
     Indication: Thrombosis
  9. SPIRIVA [Concomitant]
     Active Substance: TIOTROPIUM BROMIDE MONOHYDRATE
     Indication: Bronchitis chronic
     Route: 050
     Dates: start: 20211231

REACTIONS (1)
  - Headache [Recovered/Resolved]

NARRATIVE: CASE EVENT DATE: 20231215
